FAERS Safety Report 4895144-4 (Version None)
Quarter: 2006Q1

REPORT INFORMATION
  Report Type: 
  Country: None (occurrence: None)
  Receive Date: 20060130
  Receipt Date: 20060119
  Transmission Date: 20060701
  Serious: Yes (Other)
  Sender: FDA-Public Use
  Company Number: CA-JNJFOC-20060105022

PATIENT
  Age: 32 Year
  Sex: Female
  Weight: 47.63 kg

DRUGS (6)
  1. TYLENOL-500 [Suspect]
     Indication: HEADACHE
  2. TYLENOL-500 [Suspect]
     Indication: SINUS CONGESTION
  3. TYLENOL-500 [Suspect]
  4. TYLENOL-500 [Suspect]
  5. SINUTAB SINUS NON-DROWSY EXTRA STRENGTH [Suspect]
     Indication: SINUS DISORDER
  6. SINUTAB SINUS NON-DROWSY EXTRA STRENGTH [Suspect]

REACTIONS (12)
  - ASTHENIA [None]
  - BLOOD PRESSURE INCREASED [None]
  - CHEST PAIN [None]
  - DIZZINESS [None]
  - DYSPNOEA [None]
  - DYSSTASIA [None]
  - HEART RATE INCREASED [None]
  - HEART RATE IRREGULAR [None]
  - INCOHERENT [None]
  - INSOMNIA [None]
  - LETHARGY [None]
  - TREMOR [None]
